FAERS Safety Report 20739218 (Version 1)
Quarter: 2022Q2

REPORT INFORMATION
  Report Type: Spontaneous
  Country: JP (occurrence: JP)
  Receive Date: 20220422
  Receipt Date: 20220422
  Transmission Date: 20220721
  Serious: Yes (Hospitalization)
  Sender: FDA-Public Use
  Company Number: JP-PFIZER INC-202200542370

PATIENT
  Age: 78 Year
  Sex: Female
  Weight: 41.95 kg

DRUGS (7)
  1. PENICILLIN G BENZATHINE [Suspect]
     Active Substance: PENICILLIN G BENZATHINE
     Indication: Syphilis
     Dosage: 1 DF, SINGLE
     Route: 030
     Dates: start: 20220330, end: 20220330
  2. AZILSARTAN KAMEDOXOMIL [Concomitant]
     Active Substance: AZILSARTAN KAMEDOXOMIL
  3. BIO-THREE [Concomitant]
     Active Substance: HERBALS
  4. URSODIOL [Concomitant]
     Active Substance: URSODIOL
  5. FLUNITRAZEPAM [Concomitant]
     Active Substance: FLUNITRAZEPAM
  6. POTASSIUM ASPARTATE [Concomitant]
     Active Substance: POTASSIUM ASPARTATE
  7. AMLODIPINE [Concomitant]
     Active Substance: AMLODIPINE BESYLATE

REACTIONS (7)
  - Administration site pain [Recovered/Resolved]
  - Back pain [Recovered/Resolved]
  - Groin pain [Recovered/Resolved]
  - Injection site nodule [Recovered/Resolved]
  - Muscle swelling [Recovered/Resolved]
  - Gait disturbance [Recovered/Resolved]
  - Dysstasia [Recovered/Resolved]

NARRATIVE: CASE EVENT DATE: 20220330
